FAERS Safety Report 5605135-3 (Version None)
Quarter: 2008Q1

REPORT INFORMATION
  Report Type: 
  Country: None (occurrence: None)
  Receive Date: 20080123
  Receipt Date: 20080116
  Transmission Date: 20080703
  Serious: Yes (Other)
  Sender: FDA-Public Use
  Company Number: GXBR2005US01306

PATIENT
  Age: 45 Year
  Sex: Female
  Weight: 70.3 kg

DRUGS (1)
  1. LORATADINE [Suspect]
     Indication: RHINORRHOEA
     Dosage: 10 MG, ONCE/SINGLE, ORAL
     Route: 048
     Dates: start: 20050809, end: 20050809

REACTIONS (44)
  - AGITATION [None]
  - ANOREXIA [None]
  - ANXIETY [None]
  - ARTHRALGIA [None]
  - BACK PAIN [None]
  - BLOOD PRESSURE INCREASED [None]
  - CHEST DISCOMFORT [None]
  - CHILLS [None]
  - CONFUSIONAL STATE [None]
  - COUGH [None]
  - DISTURBANCE IN ATTENTION [None]
  - DIZZINESS [None]
  - DRY THROAT [None]
  - DYSPNOEA [None]
  - FEELING COLD [None]
  - HEADACHE [None]
  - HEART RATE INCREASED [None]
  - HYPERHIDROSIS [None]
  - HYPOAESTHESIA [None]
  - MALAISE [None]
  - MICTURITION DISORDER [None]
  - MIGRAINE [None]
  - MUSCLE SPASMS [None]
  - MUSCULAR WEAKNESS [None]
  - MUSCULOSKELETAL STIFFNESS [None]
  - MYALGIA [None]
  - MYOCARDIAL INFARCTION [None]
  - NASAL CONGESTION [None]
  - NASAL DRYNESS [None]
  - NAUSEA [None]
  - PAIN IN EXTREMITY [None]
  - PALPITATIONS [None]
  - PHARYNGOLARYNGEAL PAIN [None]
  - PHOTOPHOBIA [None]
  - PSYCHOMOTOR HYPERACTIVITY [None]
  - PYREXIA [None]
  - SNEEZING [None]
  - SPEECH DISORDER [None]
  - SUPRAVENTRICULAR EXTRASYSTOLES [None]
  - THIRST [None]
  - TINNITUS [None]
  - TREMOR [None]
  - VENTRICULAR EXTRASYSTOLES [None]
  - VISION BLURRED [None]
